FAERS Safety Report 9757372 (Version 2)
Quarter: 2013Q4

REPORT INFORMATION
  Report Type: Spontaneous
  Country: US (occurrence: US)
  Receive Date: 20131214
  Receipt Date: 20131218
  Transmission Date: 20140711
  Serious: No
  Sender: FDA-Public Use
  Company Number: US-009507513-1312USA004363

PATIENT
  Age: 26 Year
  Sex: Female
  Weight: 48.98 kg

DRUGS (3)
  1. NEXPLANON [Suspect]
     Indication: CONTRACEPTION
     Dosage: 3 YEAR IMPLANT
     Route: 059
     Dates: start: 20130521
  2. LAMICTAL [Concomitant]
  3. CELEXA -ANTI DEPRESSANT [Concomitant]

REACTIONS (3)
  - Muscle spasms [Unknown]
  - Menorrhagia [Unknown]
  - Metrorrhagia [Unknown]
